FAERS Safety Report 24565639 (Version 1)
Quarter: 2024Q4

REPORT INFORMATION
  Report Type: Spontaneous
  Country: US (occurrence: US)
  Receive Date: 20241030
  Receipt Date: 20241030
  Transmission Date: 20250115
  Serious: Yes (Other)
  Sender: NOVO NORDISK
  Company Number: US-NOVOPROD-1303122

PATIENT
  Age: 86 Year
  Sex: Female

DRUGS (2)
  1. NOVOLOG [Suspect]
     Active Substance: INSULIN ASPART
     Indication: Type 1 diabetes mellitus
     Dosage: SLIDING SCALE; MIGHT TAKE 5 UNITS OR 7 UNITS; MIGHT TAKE 9-10 UNITS DEPENDING ON MEAL.
     Route: 058
     Dates: start: 2017
  2. TRESIBA [Suspect]
     Active Substance: INSULIN DEGLUDEC
     Indication: Type 1 diabetes mellitus
     Dosage: 32 UNITS DAILY
     Route: 058
     Dates: start: 2017

REACTIONS (1)
  - Sciatic nerve injury [Recovered/Resolved]

NARRATIVE: CASE EVENT DATE: 20240901
